FAERS Safety Report 10246603 (Version 2)
Quarter: 2014Q2

REPORT INFORMATION
  Report Type: Report from Study
  Country: US (occurrence: US)
  Receive Date: 20140619
  Receipt Date: 20140619
  Transmission Date: 20141212
  Serious: Yes (Other)
  Sender: FDA-Public Use
  Company Number: US-BAXTER-2014BAX028824

PATIENT
  Age: 54 Year
  Sex: Male

DRUGS (2)
  1. GAMMAGARD LIQUID [Suspect]
     Indication: IMMUNODEFICIENCY COMMON VARIABLE
     Route: 042
     Dates: start: 2012
  2. TYLENOL [Concomitant]
     Indication: PREMEDICATION
     Dosage: 2 TABLETS AS PRE-MEDICATION
     Route: 065

REACTIONS (3)
  - Eye infection [Recovered/Resolved]
  - Lacrimation increased [Recovered/Resolved]
  - Hyperhidrosis [Recovered/Resolved]
